FAERS Safety Report 9152594 (Version 1)
Quarter: 2013Q1

REPORT INFORMATION
  Report Type: Spontaneous
  Country: JP (occurrence: JP)
  Receive Date: 20130308
  Receipt Date: 20130308
  Transmission Date: 20140127
  Serious: Yes (Death, Hospitalization)
  Sender: FDA-Public Use
  Company Number: JP-ABBOTT-11P-087-0849943-00

PATIENT
  Age: 66 Year
  Sex: Male
  Weight: 68 kg

DRUGS (5)
  1. HUMIRA [Suspect]
     Indication: RHEUMATOID ARTHRITIS
     Route: 058
     Dates: start: 20100310, end: 20110414
  2. METHOTREXATE [Concomitant]
     Indication: RHEUMATOID ARTHRITIS
     Dates: end: 20110414
  3. PREDNISOLONE [Concomitant]
     Indication: RHEUMATOID ARTHRITIS
     Route: 048
  4. SODIUM RISEDRONATE HYDRATE [Concomitant]
     Indication: OSTEOPOROSIS PROPHYLAXIS
  5. FOLIC ACID [Concomitant]
     Indication: PROPHYLAXIS
     Dates: end: 20110414

REACTIONS (4)
  - Lung neoplasm malignant [Fatal]
  - Lung cancer metastatic [Fatal]
  - Pneumonia bacterial [Recovered/Resolved]
  - Immunodeficiency [Unknown]
